FAERS Safety Report 25553494 (Version 2)
Quarter: 2025Q3

REPORT INFORMATION
  Report Type: Spontaneous
  Country: EU (occurrence: EU)
  Receive Date: 20250715
  Receipt Date: 20250807
  Transmission Date: 20251020
  Serious: Yes (Death, Hospitalization, Other)
  Sender: ROCHE
  Company Number: EU-ROCHE-10000336392

PATIENT
  Age: 66 Year
  Sex: Male

DRUGS (4)
  1. TECENTRIQ [Suspect]
     Active Substance: ATEZOLIZUMAB
     Indication: Hepatocellular carcinoma
     Dosage: HE RECEIVED 3 CYCLES EVERY 3 WEEKS OF TREATMENT WITH TECENTRIQ + AVASTIN
     Route: 042
     Dates: start: 20250410
  2. AVASTIN [Suspect]
     Active Substance: BEVACIZUMAB
     Indication: Hepatocellular carcinoma
     Dosage: THE PATIENT RECEIVED 3 CYCLES EVERY 3 WEEKS OF TREATMENT WITH TECENTRIQ + AVASTIN
     Route: 042
     Dates: start: 20250410
  3. AMLODIPINE BESYLATE\PERINDOPRIL ERBUMINE [Concomitant]
     Active Substance: AMLODIPINE BESYLATE\PERINDOPRIL ERBUMINE
     Indication: Hypertension
     Dosage: AMLESSA (4/5 MG 1 TBL. PER DAY
  4. METAMIZOLE SODIUM [Concomitant]
     Active Substance: METAMIZOLE SODIUM
     Indication: Abdominal pain

REACTIONS (3)
  - Hepatitis [Recovering/Resolving]
  - Pancreatitis necrotising [Not Recovered/Not Resolved]
  - Disease progression [Fatal]

NARRATIVE: CASE EVENT DATE: 20250529
